FAERS Safety Report 10174123 (Version 1)
Quarter: 2014Q2

REPORT INFORMATION
  Report Type: Spontaneous
  Country: US (occurrence: None)
  Receive Date: 20140514
  Receipt Date: 20140514
  Transmission Date: 20141212
  Serious: Yes (Hospitalization)
  Sender: FDA-Public Use
  Company Number: None

PATIENT
  Age: 30 Year
  Sex: Female

DRUGS (2)
  1. EXJADE 500 MG NOVARTIS [Suspect]
     Indication: SICKLE CELL ANAEMIA
     Route: 048
     Dates: start: 20120628, end: 20140507
  2. EXJADE 500 MG NOVARTIS [Suspect]
     Route: 048
     Dates: start: 20120628, end: 20140507

REACTIONS (1)
  - Liver disorder [None]
